FAERS Safety Report 4532729-9 (Version None)
Quarter: 2004Q4

REPORT INFORMATION
  Report Type: 
  Country: None (occurrence: None)
  Receive Date: 20041220
  Receipt Date: 20041220
  Transmission Date: 20050328
  Serious: Yes (Other)
  Sender: FDA-Public Use
  Company Number: None

PATIENT
  Age: 37 Year
  Sex: Male

DRUGS (1)
  1. ULTRAVIST 370 [Suspect]
     Indication: COMPUTERISED TOMOGRAM
     Dosage: 100CC

REACTIONS (5)
  - CONTRAST MEDIA REACTION [None]
  - COUGH [None]
  - EYE REDNESS [None]
  - NASAL CONGESTION [None]
  - SNEEZING [None]
